FAERS Safety Report 7076632-1 (Version None)
Quarter: 2010Q4

REPORT INFORMATION
  Report Type: 
  Country: None (occurrence: None)
  Receive Date: 20101101
  Receipt Date: 20101018
  Transmission Date: 20110411
  Serious: Yes (Death, Other)
  Sender: FDA-Public Use
  Company Number: US-ENDO PHARMACEUTICALS INC.-OPIR20100034

PATIENT
  Age: 19 Year
  Sex: Male

DRUGS (1)
  1. OPANA [Suspect]
     Dosage: UNKNOWN
     Route: 065

REACTIONS (3)
  - DRUG ABUSE [None]
  - DRUG DIVERSION [None]
  - OVERDOSE [None]
